FAERS Safety Report 6597815-0 (Version None)
Quarter: 2010Q1

REPORT INFORMATION
  Report Type: 
  Country: None (occurrence: None)
  Receive Date: 20100216
  Receipt Date: 20100201
  Transmission Date: 20100710
  Serious: Yes (Hospitalization)
  Sender: FDA-Public Use
  Company Number: 10-010

PATIENT
  Age: 66 Year
  Sex: Female

DRUGS (1)
  1. CEFAZOLIN [Suspect]
     Indication: PROPHYLAXIS
     Dosage: 500MG (TOTAL), ONCE, INTRATHECAL
     Route: 037

REACTIONS (14)
  - APHONIA [None]
  - BALANCE DISORDER [None]
  - COGNITIVE DISORDER [None]
  - COMMUNICATION DISORDER [None]
  - DYSARTHRIA [None]
  - DYSPHAGIA [None]
  - DYSSTASIA [None]
  - GAIT DISTURBANCE [None]
  - HYPOREFLEXIA [None]
  - LIP DISORDER [None]
  - MENTAL STATUS CHANGES [None]
  - STATUS EPILEPTICUS [None]
  - TONGUE PARALYSIS [None]
  - UPPER MOTOR NEURONE LESION [None]
